FAERS Safety Report 6573067-2 (Version None)
Quarter: 2010Q1

REPORT INFORMATION
  Report Type: 
  Country: None (occurrence: None)
  Receive Date: 20100208
  Receipt Date: 20100201
  Transmission Date: 20100710
  Serious: Yes (Other)
  Sender: FDA-Public Use
  Company Number: US-BAYER-201012899NA

PATIENT
  Sex: Female

DRUGS (2)
  1. YAZ [Suspect]
     Indication: DRUG USE FOR UNKNOWN INDICATION
  2. OCELLA [Suspect]
     Indication: DRUG USE FOR UNKNOWN INDICATION

REACTIONS (1)
  - INJURY [None]
